FAERS Safety Report 12787906 (Version 1)
Quarter: 2016Q3

REPORT INFORMATION
  Report Type: Spontaneous
  Country: US (occurrence: US)
  Receive Date: 20160928
  Receipt Date: 20160928
  Transmission Date: 20161109
  Serious: No
  Sender: FDA-Public Use
  Company Number: US-ASTRAZENECA-2016SE88458

PATIENT
  Sex: Male

DRUGS (2)
  1. LYNPARZA [Suspect]
     Active Substance: OLAPARIB
     Indication: PROSTATE CANCER
     Dosage: HALF DOSE
     Route: 048
     Dates: start: 201606
  2. ANOTHER MEDICATION [Concomitant]
     Active Substance: UNSPECIFIED INGREDIENT

REACTIONS (6)
  - Drug ineffective [Unknown]
  - Feeling hot [Unknown]
  - Product use issue [Unknown]
  - Peripheral swelling [Unknown]
  - Off label use [Unknown]
  - Prostatic specific antigen increased [Unknown]
